FAERS Safety Report 15591125 (Version 1)
Quarter: 2018Q4

REPORT INFORMATION
  Report Type: Spontaneous
  Country: BR (occurrence: BR)
  Receive Date: 20181106
  Receipt Date: 20181106
  Transmission Date: 20190205
  Serious: Yes (Other)
  Sender: FDA-Public Use
  Company Number: BR-JAZZ-2018-BR-016090

PATIENT
  Age: 56 Year
  Sex: Male

DRUGS (1)
  1. DEFIBROTIDE (NPB) [Suspect]
     Active Substance: DEFIBROTIDE SODIUM
     Indication: VENOOCCLUSIVE DISEASE
     Dosage: UNK
     Route: 042
     Dates: start: 20180930, end: 20181021

REACTIONS (5)
  - Renal failure [Unknown]
  - Hepatic failure [Unknown]
  - Cryptosporidiosis infection [Unknown]
  - Renal injury [Unknown]
  - Hepatic encephalopathy [Unknown]

NARRATIVE: CASE EVENT DATE: 20180930
